FAERS Safety Report 10480649 (Version 1)
Quarter: 2014Q3

REPORT INFORMATION
  Report Type: Spontaneous
  Country: US (occurrence: None)
  Receive Date: 20140926
  Receipt Date: 20140926
  Transmission Date: 20150326
  Serious: Yes (Hospitalization)
  Sender: FDA-Public Use
  Company Number: None

PATIENT
  Age: 59 Year
  Sex: Female
  Weight: 73.94 kg

DRUGS (8)
  1. METAMUCIL [Concomitant]
     Active Substance: PLANTAGO SEED
  2. NORVASC [Concomitant]
     Active Substance: AMLODIPINE BESYLATE
  3. LEVAQUIN [Concomitant]
     Active Substance: LEVOFLOXACIN
  4. EVEROLIMUS [Suspect]
     Active Substance: EVEROLIMUS
     Indication: FALLOPIAN TUBE CANCER
     Route: 048
     Dates: start: 20140423, end: 20140826
  5. SIMVASTATIN. [Concomitant]
     Active Substance: SIMVASTATIN
  6. CARBOPLATIN. [Suspect]
     Active Substance: CARBOPLATIN
     Indication: FALLOPIAN TUBE CANCER
     Dosage: AUC 5/30MG.M2 DAY 1 IV
     Route: 042
     Dates: start: 20140423, end: 20140723
  7. DOXIL [Suspect]
     Active Substance: DOXORUBICIN HYDROCHLORIDE
     Indication: FALLOPIAN TUBE CANCER
     Dosage: AUC 5/30 MG /M2 DAY 1 IV
     Dates: start: 20140423, end: 20140723
  8. TYLENOL [Concomitant]
     Active Substance: ACETAMINOPHEN

REACTIONS (3)
  - Urine odour abnormal [None]
  - Appendicitis [None]
  - Urinary retention [None]

NARRATIVE: CASE EVENT DATE: 20140925
